FAERS Safety Report 21634954 (Version 1)
Quarter: 2022Q4

REPORT INFORMATION
  Report Type: Spontaneous
  Country: PR (occurrence: PR)
  Receive Date: 20221123
  Receipt Date: 20221123
  Transmission Date: 20230113
  Serious: Yes (Life-Threatening)
  Sender: FDA-Public Use
  Company Number: PR-GUERBET / LLC-PR-20220002

PATIENT
  Age: 68 Year
  Sex: Female
  Weight: 62.59 kg

DRUGS (5)
  1. OPTIRAY 320 [Suspect]
     Active Substance: IOVERSOL
     Indication: Computerised tomogram abdomen
     Route: 042
     Dates: start: 20221109, end: 20221109
  2. PROTONIX [Concomitant]
     Active Substance: PANTOPRAZOLE SODIUM
     Indication: Product used for unknown indication
     Route: 048
     Dates: start: 20221108, end: 20221108
  3. MEDROL [Concomitant]
     Active Substance: METHYLPREDNISOLONE
     Indication: Product used for unknown indication
     Dosage: AT 08:00 PM, DAY BEFORE THE EXAM
     Route: 048
     Dates: start: 20221108, end: 20221108
  4. MEDROL [Concomitant]
     Active Substance: METHYLPREDNISOLONE
     Dosage: AT 06:00 AM OF EXAM DAY
     Route: 048
     Dates: start: 20221109, end: 20221109
  5. BENADRYL [Concomitant]
     Active Substance: DIPHENHYDRAMINE HYDROCHLORIDE
     Indication: Product used for unknown indication
     Route: 048
     Dates: start: 20221109, end: 20221109

REACTIONS (5)
  - Cough [Recovering/Resolving]
  - Inflammation [Recovering/Resolving]
  - Respiratory distress [Recovered/Resolved]
  - Urticaria [Recovering/Resolving]
  - Eye pruritus [Recovered/Resolved]

NARRATIVE: CASE EVENT DATE: 20221109
